FAERS Safety Report 6419589-6 (Version None)
Quarter: 2009Q4

REPORT INFORMATION
  Report Type: 
  Country: None (occurrence: None)
  Receive Date: 20091027
  Receipt Date: 20091012
  Transmission Date: 20100525
  Serious: Yes (Other)
  Sender: FDA-Public Use
  Company Number: 8053552

PATIENT
  Age: 59 Year
  Sex: Male

DRUGS (8)
  1. KEPPRA [Suspect]
     Indication: EPILEPSY
  2. LAMOTRIGINE [Suspect]
     Indication: EPILEPSY
     Dosage: 50 MG 2/D PO
     Route: 048
     Dates: start: 20090601, end: 20090930
  3. LAMOTRIGINE [Suspect]
     Indication: EPILEPSY
  4. PANTOZOL /01263202/ [Suspect]
     Dosage: 40 MG D
  5. ATEHEXAL [Suspect]
     Indication: HYPERTENSION
     Dosage: 50 MG D
  6. CARMEN [Suspect]
     Indication: HYPERTENSION
     Dosage: 10 MG D
  7. DELIX /00885601/ [Suspect]
     Indication: HYPERTENSION
     Dosage: 5 MG D
  8. SIMVASTATIN /00885601/ [Suspect]
     Dosage: 20 MG D

REACTIONS (9)
  - ASTHENIA [None]
  - BLOOD ELECTROLYTES ABNORMAL [None]
  - DRUG INTERACTION [None]
  - FATIGUE [None]
  - GRAND MAL CONVULSION [None]
  - HYPERKALAEMIA [None]
  - HYPONATRAEMIA [None]
  - POST PROCEDURAL HAEMORRHAGE [None]
  - TONGUE NEOPLASM MALIGNANT STAGE UNSPECIFIED [None]
